FAERS Safety Report 5951534-X (Version None)
Quarter: 2008Q4

REPORT INFORMATION
  Report Type: 
  Country: None (occurrence: None)
  Receive Date: 20081113
  Receipt Date: 20081104
  Transmission Date: 20090506
  Serious: Yes (Other)
  Sender: FDA-Public Use
  Company Number: DE-TYCO HEALTHCARE/MALLINCKRODT-T200801455

PATIENT

DRUGS (1)
  1. OPTIRAY 300 [Suspect]
     Indication: UROGRAM
     Dosage: UNK, UNK
     Route: 042
     Dates: start: 20080717, end: 20080717

REACTIONS (2)
  - BRONCHOSPASM [None]
  - TACHYCARDIA [None]
